FAERS Safety Report 7473710-X (Version None)
Quarter: 2011Q2

REPORT INFORMATION
  Report Type: 
  Country: None (occurrence: None)
  Receive Date: 20110511
  Receipt Date: 20110505
  Transmission Date: 20111010
  Serious: Yes (Other)
  Sender: FDA-Public Use
  Company Number: US-PFIZER INC-2011097235

PATIENT
  Sex: Female
  Weight: 104 kg

DRUGS (2)
  1. DEPO-PROVERA [Suspect]
     Indication: MENSTRUATION IRREGULAR
  2. DEPO-PROVERA [Suspect]
     Indication: OFF LABEL USE
     Dosage: UNK
     Dates: start: 20110201, end: 20110101

REACTIONS (1)
  - NIPPLE EXUDATE BLOODY [None]
